FAERS Safety Report 5282030-3 (Version None)
Quarter: 2007Q1

REPORT INFORMATION
  Report Type: 
  Country: None (occurrence: None)
  Receive Date: 20070330
  Receipt Date: 20070323
  Transmission Date: 20070707
  Serious: Yes (Other)
  Sender: FDA-Public Use
  Company Number: GB-MERCK-0703GBR00116

PATIENT
  Age: 84 Year
  Sex: Male
  Weight: 80 kg

DRUGS (13)
  1. ZOCOR [Suspect]
     Indication: BLOOD CHOLESTEROL INCREASED
     Route: 048
     Dates: start: 20040401, end: 20061101
  2. AMOXICILLIN [Concomitant]
     Route: 065
     Dates: start: 20061012
  3. DIGOXIN [Concomitant]
     Route: 065
     Dates: start: 20060504
  4. INFLUENZA VIRUS SPLIT VIRION 3V VACCINE INACTIVATED [Concomitant]
     Route: 065
     Dates: end: 20070125
  5. FUROSEMIDE [Concomitant]
     Route: 065
     Dates: start: 20060504
  6. LANSOPRAZOLE [Concomitant]
     Indication: PROPHYLAXIS
     Route: 065
     Dates: start: 20070309
  7. LATANOPROST [Concomitant]
     Route: 065
     Dates: start: 20021129
  8. MESALAMINE [Concomitant]
     Route: 065
     Dates: start: 20070125
  9. PREDNISOLONE [Concomitant]
     Route: 065
  10. RAMIPRIL [Concomitant]
     Route: 065
     Dates: start: 20061012
  11. TIMOPTIC [Concomitant]
     Route: 065
     Dates: start: 19990113
  12. WARFARIN SODIUM [Concomitant]
     Route: 065
     Dates: start: 20060731
  13. [THERAPY UNSPECIFIED] [Concomitant]
     Route: 065

REACTIONS (1)
  - EXTERNAL EAR DISORDER [None]
